FAERS Safety Report 4743336-7 (Version None)
Quarter: 2005Q3

REPORT INFORMATION
  Report Type: 
  Country: None (occurrence: None)
  Receive Date: 20050809
  Receipt Date: 20050802
  Transmission Date: 20060218
  Serious: Yes (Other)
  Sender: FDA-Public Use
  Company Number: 200511120BWH

PATIENT
  Age: 37 Year
  Sex: Female

DRUGS (5)
  1. AVELOX [Suspect]
     Indication: SINUSITIS
     Dosage: 400 MG, QD, ORAL
     Route: 048
     Dates: start: 20000331, end: 20000402
  2. ELMIRON [Concomitant]
  3. SINGULAIR [Concomitant]
  4. LEXAPRO [Concomitant]
  5. KLONOPIN [Concomitant]

REACTIONS (16)
  - AMNESIA [None]
  - BRADYPHRENIA [None]
  - COMMUNICATION DISORDER [None]
  - CONFUSIONAL STATE [None]
  - DEPRESSION [None]
  - DIARRHOEA [None]
  - DIZZINESS [None]
  - FEELING DRUNK [None]
  - IMPAIRED WORK ABILITY [None]
  - MENTAL DISORDER [None]
  - NAUSEA [None]
  - NERVOUS SYSTEM DISORDER [None]
  - POST-TRAUMATIC STRESS DISORDER [None]
  - PRURITUS [None]
  - RASH [None]
  - SYNCOPE [None]
